FAERS Safety Report 23123843 (Version 1)
Quarter: 2023Q4

REPORT INFORMATION
  Report Type: Report from Study
  Country: US (occurrence: US)
  Receive Date: 20231030
  Receipt Date: 20231030
  Transmission Date: 20240110
  Serious: Yes (Other)
  Sender: FDA-Public Use
  Company Number: US-002147023-NVSC2023US229435

PATIENT
  Sex: Female

DRUGS (1)
  1. COSENTYX [Suspect]
     Active Substance: SECUKINUMAB
     Indication: Product used for unknown indication
     Dosage: UNK
     Route: 065

REACTIONS (7)
  - Lupus-like syndrome [Unknown]
  - Locked-in syndrome [Unknown]
  - Fibromyalgia [Unknown]
  - Cyanosis [Unknown]
  - Scratch [Unknown]
  - Paraesthesia [Unknown]
  - Movement disorder [Unknown]
